FAERS Safety Report 17158329 (Version 11)
Quarter: 2023Q4

REPORT INFORMATION
  Report Type: Spontaneous
  Country: US (occurrence: US)
  Receive Date: 20191216
  Receipt Date: 20231221
  Transmission Date: 20240110
  Serious: Yes (Hospitalization, Other)
  Sender: FDA-Public Use
  Company Number: US-PFIZER INC-2019539903

PATIENT
  Age: 60 Year
  Sex: Female

DRUGS (1)
  1. PREMPRO [Suspect]
     Active Substance: ESTROGENS, CONJUGATED\MEDROXYPROGESTERONE ACETATE
     Dosage: UNK

REACTIONS (11)
  - Mouth injury [Unknown]
  - Loss of consciousness [Unknown]
  - Mouth haemorrhage [Unknown]
  - Foot operation [Unknown]
  - Diabetes mellitus [Unknown]
  - Speech disorder [Unknown]
  - Pain [Unknown]
  - Skin discolouration [Unknown]
  - Distractibility [Unknown]
  - Memory impairment [Unknown]
  - Accident [Unknown]

NARRATIVE: CASE EVENT DATE: 20210101
